FAERS Safety Report 14985503 (Version 1)
Quarter: 2018Q2

REPORT INFORMATION
  Report Type: Spontaneous
  Country: US (occurrence: US)
  Receive Date: 20180607
  Receipt Date: 20180607
  Transmission Date: 20180711
  Serious: No
  Sender: FDA-Public Use
  Company Number: US-MACLEODS PHARMACEUTICALS US LTD-MAC2018009374

PATIENT

DRUGS (1)
  1. QUETIAPINE 300 MG [Suspect]
     Active Substance: QUETIAPINE
     Indication: INSOMNIA
     Dosage: 300 MILLIGRAM
     Route: 065

REACTIONS (3)
  - Sleep disorder [Unknown]
  - Middle insomnia [Unknown]
  - Product use in unapproved indication [Unknown]
